FAERS Safety Report 19089044 (Version 1)
Quarter: 2021Q2

REPORT INFORMATION
  Report Type: Spontaneous
  Country: HR (occurrence: HR)
  Receive Date: 20210403
  Receipt Date: 20210403
  Transmission Date: 20210717
  Serious: Yes (Other)
  Sender: FDA-Public Use
  Company Number: HR-TEVA-2021-HR-1896359

PATIENT
  Age: 38 Year
  Sex: Male

DRUGS (3)
  1. TRAMAL [Suspect]
     Active Substance: TRAMADOL
     Dosage: UNKNOWN AMOUNT OF TRAMAL
     Route: 042
     Dates: start: 20210220, end: 20210220
  2. METHADONUM [Suspect]
     Active Substance: METHADONE HYDROCHLORIDE
     Dosage: INJECTED METHADONE 10 MG
     Route: 042
     Dates: start: 20210220, end: 20210220
  3. PREGABALINUM [Suspect]
     Active Substance: PREGABALIN
     Dosage: UNKNOWN AMOUNT OF PREGABALIN
     Route: 048
     Dates: start: 20210220, end: 20210220

REACTIONS (5)
  - Intentional overdose [Unknown]
  - Drug abuse [Unknown]
  - Suicide attempt [Unknown]
  - Altered state of consciousness [Unknown]
  - Oxygen saturation decreased [Unknown]

NARRATIVE: CASE EVENT DATE: 20210220
